FAERS Safety Report 8595268-4 (Version None)
Quarter: 2012Q3

REPORT INFORMATION
  Report Type: 
  Country: None (occurrence: None)
  Receive Date: 20120815
  Receipt Date: 20120627
  Transmission Date: 20120928
  Serious: Yes (Hospitalization, Other)
  Sender: FDA-Public Use
  Company Number: BE-009507513-1008BEL00003

PATIENT

DRUGS (42)
  1. NORFLOXACIN [Concomitant]
     Indication: PROPHYLAXIS
     Route: 048
     Dates: start: 20100123, end: 20100127
  2. ESOMEPRAZOLE [Concomitant]
     Route: 048
     Dates: start: 20100126, end: 20100202
  3. ALBUMIN (HUMAN) [Concomitant]
     Indication: HEPATORENAL SYNDROME
     Route: 041
     Dates: start: 20100126, end: 20100205
  4. METHYLPREDNISOLONE [Concomitant]
     Indication: LIVER TRANSPLANT
     Dates: start: 20100126, end: 20100208
  5. INSULIN [Concomitant]
     Route: 058
     Dates: start: 20100203, end: 20100205
  6. VANCOMYCIN [Suspect]
     Indication: LOCALISED INTRAABDOMINAL FLUID COLLECTION
     Route: 041
     Dates: start: 20100126, end: 20100204
  7. VANCOMYCIN [Suspect]
     Indication: STAPHYLOCOCCAL INFECTION
  8. IPRATROPIUM BROMIDE [Concomitant]
     Indication: PNEUMONIA
     Route: 055
     Dates: start: 20100203, end: 20100203
  9. PLASMA PROTEIN FRACTION (HUMAN) [Concomitant]
     Indication: HYPOVOLAEMIA
     Route: 041
     Dates: start: 20100127, end: 20100202
  10. PLASMA PROTEIN FRACTION (HUMAN) [Concomitant]
     Route: 041
     Dates: start: 20100204, end: 20100204
  11. SULFAMETHOXAZOLE AND TRIMETHOPRIM [Concomitant]
     Indication: ANTIFUNGAL PROPHYLAXIS
     Dates: start: 20100208
  12. MYCOPHENOLATE MOFETIL [Concomitant]
     Indication: LIVER TRANSPLANT
     Dates: start: 20070702, end: 20100127
  13. TERLIPRESSIN [Concomitant]
     Indication: RENAL FAILURE
     Route: 042
     Dates: start: 20100108, end: 20100127
  14. INSULIN [Concomitant]
     Indication: DIABETES PROPHYLAXIS
     Route: 058
     Dates: start: 20100126, end: 20100201
  15. MEROPENEM [Concomitant]
     Indication: PNEUMONIA
     Route: 041
     Dates: start: 20100203, end: 20100209
  16. BLOOD CELLS, RED [Concomitant]
     Indication: ANAEMIA
     Route: 041
     Dates: start: 20100204, end: 20100204
  17. OMEPRAZOLE [Concomitant]
     Indication: OESOPHAGITIS
     Dates: start: 20100203, end: 20100309
  18. OMEPRAZOLE [Concomitant]
     Dates: start: 20100310
  19. HEPARIN [Concomitant]
     Indication: DEEP VEIN THROMBOSIS
     Route: 041
     Dates: start: 20100203, end: 20100220
  20. TACROLIMUS [Suspect]
     Indication: LIVER TRANSPLANT
     Dates: start: 20090525, end: 20100127
  21. CANCIDAS [Suspect]
     Dosage: 50 MG, QD
     Route: 042
     Dates: start: 20100128, end: 20100216
  22. TACROLIMUS [Suspect]
     Indication: IMMUNOSUPPRESSION
     Dates: start: 20100129, end: 20100309
  23. TACROLIMUS [Suspect]
     Dates: start: 20100310, end: 20100314
  24. INSULIN [Concomitant]
     Route: 058
     Dates: start: 20100209, end: 20100209
  25. DEXTROSE [Concomitant]
     Indication: PROPHYLAXIS
     Dosage: UNK %, UNK
     Route: 041
     Dates: start: 20100203, end: 20100203
  26. DUOVENT [Concomitant]
     Route: 055
     Dates: start: 20100203, end: 20100301
  27. CEFTRIAXONE SODIUM [Concomitant]
     Indication: PROPHYLAXIS
     Route: 041
     Dates: start: 20100126, end: 20100129
  28. URSODIOL [Concomitant]
     Indication: BILIARY CIRRHOSIS
     Route: 048
     Dates: start: 20091103, end: 20100127
  29. METHYLPREDNISOLONE [Concomitant]
     Indication: IMMUNOSUPPRESSION
     Dates: start: 20100209, end: 20100426
  30. ACYCLOVIR [Concomitant]
     Indication: PROPHYLAXIS
     Dates: start: 20100203, end: 20100326
  31. DUOVENT [Concomitant]
     Indication: PROPHYLAXIS
     Route: 055
     Dates: start: 20091220, end: 20100126
  32. CANCIDAS [Suspect]
     Indication: INFECTION PROPHYLAXIS
     Dosage: 70 MG, QD
     Route: 042
     Dates: start: 20100127, end: 20100127
  33. TACROLIMUS [Suspect]
     Dates: start: 20100317
  34. MYCOPHENOLATE MOFETIL [Concomitant]
     Indication: IMMUNOSUPPRESSION
     Dates: start: 20100127
  35. ESOMEPRAZOLE [Concomitant]
     Indication: OESOPHAGITIS
     Route: 048
     Dates: start: 20100112, end: 20100126
  36. MAGNESIUM SULFATE [Concomitant]
     Indication: MAGNESIUM DEFICIENCY
     Dates: start: 20100126, end: 20100129
  37. LACTITOL [Concomitant]
     Indication: ENCEPHALOPATHY
     Route: 048
     Dates: start: 20100108, end: 20100127
  38. ALBUMIN (HUMAN) [Concomitant]
     Indication: RENAL FAILURE
     Route: 041
     Dates: start: 20100126, end: 20100126
  39. AMPICILLIN [Concomitant]
     Indication: PROPHYLAXIS
     Route: 041
     Dates: start: 20100126, end: 20100129
  40. NOREPINEPHRINE [Concomitant]
     Indication: HYPOTENSION
     Route: 041
     Dates: start: 20100203, end: 20100205
  41. TRAMADOL HYDROCHLORIDE [Concomitant]
     Indication: COMPLICATIONS OF TRANSPLANT SURGERY
     Dates: start: 20100207
  42. HEPARIN [Concomitant]
     Route: 041
     Dates: start: 20100227, end: 20100307

REACTIONS (1)
  - HYPERKALAEMIA [None]
